FAERS Safety Report 16773711 (Version 1)
Quarter: 2019Q4

REPORT INFORMATION
  Report Type: Spontaneous
  Country: US (occurrence: US)
  Receive Date: 20190904
  Receipt Date: 20190904
  Transmission Date: 20200122
  Serious: Yes (Life-Threatening, Hospitalization)
  Sender: FDA-Public Use
  Company Number: None

PATIENT
  Age: 48 Year
  Sex: Female
  Weight: 140 kg

DRUGS (1)
  1. CLOZAPINE. [Suspect]
     Active Substance: CLOZAPINE
     Indication: SCHIZOPHRENIA

REACTIONS (8)
  - Drug dose titration not performed [None]
  - Unresponsive to stimuli [None]
  - Accidental overdose [None]
  - Somnolence [None]
  - Tachycardia [None]
  - Product dose omission [None]
  - Hypotension [None]
  - Salivary hypersecretion [None]

NARRATIVE: CASE EVENT DATE: 20190904
